FAERS Safety Report 5153422-8 (Version None)
Quarter: 2006Q4

REPORT INFORMATION
  Report Type: 
  Country: None (occurrence: None)
  Receive Date: 20061110
  Receipt Date: 20061103
  Transmission Date: 20070319
  Serious: No
  Sender: FDA-Public Use
  Company Number: 2006-150036-NL

PATIENT
  Age: 53 Year
  Sex: Female

DRUGS (1)
  1. MIRTAZAPINE [Suspect]
     Indication: DEPRESSION
     Dosage: DF
     Route: 048

REACTIONS (4)
  - ANGINA PECTORIS [None]
  - HAEMORRHAGE [None]
  - INSOMNIA [None]
  - RESPIRATORY DISORDER [None]
